FAERS Safety Report 15731331 (Version 1)
Quarter: 2018Q4

REPORT INFORMATION
  Report Type: Report from Study
  Country: AT (occurrence: AT)
  Receive Date: 20181217
  Receipt Date: 20181217
  Transmission Date: 20190205
  Serious: Yes (Hospitalization)
  Sender: FDA-Public Use
  Company Number: AT-MYLANLABS-2018M1091400

PATIENT

DRUGS (3)
  1. TOBI [Suspect]
     Active Substance: TOBRAMYCIN
     Indication: PSEUDOMONAS INFECTION
     Dosage: 300 MG, Q12H
     Route: 055
     Dates: start: 20050104
  2. KREON [Concomitant]
     Active Substance: PANCRELIPASE
     Dosage: UNK
  3. VITAMINS NOS [Concomitant]
     Active Substance: VITAMINS
     Dosage: UNK

REACTIONS (4)
  - Varicella [Recovered/Resolved]
  - Pyrexia [Recovered/Resolved]
  - Fluid intake reduced [Recovered/Resolved]
  - Prothrombin time shortened [Unknown]

NARRATIVE: CASE EVENT DATE: 20050113
